FAERS Safety Report 15898789 (Version 8)
Quarter: 2022Q3

REPORT INFORMATION
  Report Type: Report from Study
  Country: DE (occurrence: None)
  Receive Date: 20190201
  Receipt Date: 20220722
  Transmission Date: 20221027
  Serious: Yes (Hospitalization)
  Sender: FDA-Public Use
  Company Number: DE-ROCHE-2209175

PATIENT
  Age: 67 Year
  Sex: Female
  Weight: 54 kg

DRUGS (22)
  1. ATEZOLIZUMAB [Suspect]
     Active Substance: ATEZOLIZUMAB
     Indication: Ovarian cancer
     Dosage: DATE OF MOST RECENT DOSE OF BLINDED ATEZOLIZUMAB PRIOR TO FEVER: 30/OCT/2018?DATE OF MOST RECENT DOS
     Route: 042
     Dates: start: 20180920
  2. BEVACIZUMAB [Suspect]
     Active Substance: BEVACIZUMAB
     Indication: Ovarian cancer
     Dosage: DATE OF MOST RECENT DOSE OF BEVACIZUMAB (800 MG) PRIOR TO FEVER AND EXANTHEM: 10/OCT/2018
     Route: 042
     Dates: start: 20181010
  3. CARBOPLATIN [Suspect]
     Active Substance: CARBOPLATIN
     Indication: Ovarian cancer
     Dosage: AT A DOSE TO ACHIEVE A TARGET AREA UNDER THE CURVE (AUC) OF 6 MILLIGRAMS PER MILLILITER*MINUTE (MG/M
     Route: 042
     Dates: start: 20180920
  4. PACLITAXEL [Suspect]
     Active Substance: PACLITAXEL
     Indication: Ovarian cancer
     Dosage: DATE OF MOST RECENT DOSE OF PACLITAXEL (273 MG) PRIOR TO FEVER: 30/OCT/2018?DATE OF MOST RECENT DOSE
     Route: 042
     Dates: start: 20180920
  5. AKYNZEO [Concomitant]
     Indication: Chemotherapy side effect prophylaxis
     Dates: start: 20181010, end: 20181010
  6. AKYNZEO [Concomitant]
     Dates: start: 20181030, end: 20181030
  7. AKYNZEO [Concomitant]
     Dates: start: 20181121, end: 20181121
  8. CLEMASTINE [Concomitant]
     Active Substance: CLEMASTINE
     Indication: Chemotherapy side effect prophylaxis
     Dates: start: 20181010, end: 20181010
  9. CLEMASTINE [Concomitant]
     Active Substance: CLEMASTINE
     Dates: start: 20181030, end: 20181030
  10. CLEMASTINE [Concomitant]
     Active Substance: CLEMASTINE
     Dates: start: 20181121, end: 20181121
  11. RANITIDINE HYDROCHLORIDE [Concomitant]
     Active Substance: RANITIDINE HYDROCHLORIDE
     Indication: Chemotherapy side effect prophylaxis
     Dates: start: 20181010, end: 20181010
  12. RANITIDINE HYDROCHLORIDE [Concomitant]
     Active Substance: RANITIDINE HYDROCHLORIDE
     Dates: start: 20181030, end: 20181030
  13. RANITIDINE HYDROCHLORIDE [Concomitant]
     Active Substance: RANITIDINE HYDROCHLORIDE
     Dates: start: 20181121, end: 20181121
  14. DEXAMETHASONE [Concomitant]
     Active Substance: DEXAMETHASONE
     Indication: Chemotherapy side effect prophylaxis
     Route: 042
     Dates: start: 20181010, end: 20181010
  15. DEXAMETHASONE [Concomitant]
     Active Substance: DEXAMETHASONE
     Route: 042
     Dates: start: 20181030, end: 20181030
  16. DEXAMETHASONE [Concomitant]
     Active Substance: DEXAMETHASONE
     Route: 042
     Dates: start: 20181121, end: 20181121
  17. METOPROLOL [Concomitant]
     Active Substance: METOPROLOL
     Indication: Hypertension
     Dates: start: 2010
  18. ENOXAPARIN SODIUM [Concomitant]
     Active Substance: ENOXAPARIN SODIUM
     Indication: Prophylaxis
     Dates: start: 20181031, end: 20181102
  19. SANDDORN OIL [Concomitant]
     Indication: Dry mouth
     Dates: start: 20181124
  20. PIPERACILLIN SODIUM\TAZOBACTAM SODIUM [Concomitant]
     Active Substance: PIPERACILLIN SODIUM\TAZOBACTAM SODIUM
     Indication: Prophylaxis
     Dates: start: 20181122, end: 20181128
  21. ACETYLCYSTEINE [Concomitant]
     Active Substance: ACETYLCYSTEINE
     Indication: Pneumonia
     Dates: start: 20181121, end: 20181129
  22. SAMSCA [Concomitant]
     Active Substance: TOLVAPTAN
     Indication: Hypernatraemia
     Dates: start: 20181031, end: 20181102

REACTIONS (3)
  - Pyrexia [Recovered/Resolved]
  - Rash [Recovered/Resolved]
  - Hypertension [Recovered/Resolved]

NARRATIVE: CASE EVENT DATE: 20181030
